FAERS Safety Report 9813002 (Version 2)
Quarter: 2014Q1

REPORT INFORMATION
  Report Type: Spontaneous
  Country: JP (occurrence: JP)
  Receive Date: 20140113
  Receipt Date: 20140130
  Transmission Date: 20141002
  Serious: Yes (Hospitalization)
  Sender: FDA-Public Use
  Company Number: JP-PFIZER INC-2014004858

PATIENT
  Age: 52 Year
  Sex: Male

DRUGS (6)
  1. VFEND [Suspect]
     Indication: BRONCHOPULMONARY ASPERGILLOSIS
     Dosage: 400 MG, DAILY
     Route: 042
  2. VFEND [Suspect]
     Indication: BRONCHOPULMONARY ASPERGILLOSIS
     Dosage: 400 MG, DAILY
     Route: 048
  3. DASATINIB HYDRATE [Concomitant]
     Indication: CHRONIC MYELOID LEUKAEMIA
     Route: 048
  4. VALACICLOVIR HYDROCHLORIDE [Concomitant]
     Route: 048
  5. MEROPENEM [Concomitant]
     Indication: FEBRILE NEUTROPENIA
     Route: 042
  6. VANCOMYCIN [Concomitant]
     Indication: FEBRILE NEUTROPENIA
     Route: 042

REACTIONS (1)
  - Substance-induced mood disorder [Recovered/Resolved]
